FAERS Safety Report 12831181 (Version 2)
Quarter: 2016Q4

REPORT INFORMATION
  Report Type: Report from Study
  Country: US (occurrence: US)
  Receive Date: 20161008
  Receipt Date: 20161008
  Transmission Date: 20170207
  Serious: Yes (Hospitalization, Other)
  Sender: FDA-Public Use
  Company Number: US-AMGEN-USASL2016136660

PATIENT
  Sex: Female

DRUGS (1)
  1. ENBREL [Suspect]
     Active Substance: ETANERCEPT
     Indication: JUVENILE IDIOPATHIC ARTHRITIS
     Dosage: UNK
     Route: 065
     Dates: end: 2008

REACTIONS (4)
  - Pneumonia [Unknown]
  - Infectious mononucleosis [Unknown]
  - Papilloma viral infection [Unknown]
  - Weight decreased [Unknown]

NARRATIVE: CASE EVENT DATE: 200601
